FAERS Safety Report 9779111 (Version 1)
Quarter: 2013Q4

REPORT INFORMATION
  Report Type: Spontaneous
  Country: US (occurrence: US)
  Receive Date: 20131223
  Receipt Date: 20131223
  Transmission Date: 20140711
  Serious: No
  Sender: FDA-Public Use
  Company Number: US-ENDO PHARMACEUTICALS INC.-OPCR20130423

PATIENT
  Sex: Female

DRUGS (2)
  1. OPANA ER 40MG [Suspect]
     Indication: PAIN
     Route: 048
     Dates: start: 201307
  2. OPANA [Concomitant]
     Indication: BREAKTHROUGH PAIN
     Route: 048
     Dates: start: 201307

REACTIONS (4)
  - Flatulence [Not Recovered/Not Resolved]
  - Abdominal discomfort [Not Recovered/Not Resolved]
  - Abdominal distension [Not Recovered/Not Resolved]
  - Drug effect decreased [Not Recovered/Not Resolved]
